FAERS Safety Report 11843538 (Version 1)
Quarter: 2015Q4

REPORT INFORMATION
  Report Type: Spontaneous
  Country: US (occurrence: US)
  Receive Date: 20151217
  Receipt Date: 20151217
  Transmission Date: 20160305
  Serious: No
  Sender: FDA-Public Use
  Company Number: US-009507513-1512USA001830

PATIENT
  Age: 30 Year
  Sex: Female
  Weight: 54.42 kg

DRUGS (2)
  1. NEXPLANON [Suspect]
     Active Substance: ETONOGESTREL
     Indication: CONTRACEPTION
     Dosage: 1 DF, 3 YEAR IMPLANT
     Route: 059
     Dates: start: 20150911
  2. PROZAC [Concomitant]
     Active Substance: FLUOXETINE HYDROCHLORIDE

REACTIONS (2)
  - Amenorrhoea [Unknown]
  - Headache [Unknown]

NARRATIVE: CASE EVENT DATE: 201511
